FAERS Safety Report 7242178-0 (Version None)
Quarter: 2011Q1

REPORT INFORMATION
  Report Type: 
  Country: None (occurrence: None)
  Receive Date: 20110124
  Receipt Date: 20101217
  Transmission Date: 20110831
  Serious: Yes (Other)
  Sender: FDA-Public Use
  Company Number: PHHY2010JP69810

PATIENT
  Age: 86 Year
  Sex: Male

DRUGS (12)
  1. FAMVIR [Suspect]
     Indication: HERPES ZOSTER
     Dosage: 1500 MG, PER DAY
     Route: 048
     Dates: start: 20101004, end: 20101007
  2. LANSOPRAZOLE [Concomitant]
     Dosage: UNK
     Dates: start: 20101004, end: 20101011
  3. MAGNESIUM OXIDE [Concomitant]
     Dosage: UNK
  4. GABAPENTIN [Concomitant]
     Dosage: UNK
     Dates: start: 20101004, end: 20101007
  5. CETIRIZINE HYDROCHLORIDE [Concomitant]
     Dosage: UNK
  6. LOXOPROFEN SODIUM [Concomitant]
     Dosage: UNK
     Dates: start: 20101004, end: 20101011
  7. SENNOSIDE [Concomitant]
     Dosage: UNK
  8. LASIX [Concomitant]
  9. ETHYL ICOSAPENTATE [Concomitant]
     Dosage: UNK
  10. FAMVIR [Suspect]
     Dosage: 1000 MG, PER DAY
     Route: 048
     Dates: start: 20101008, end: 20101012
  11. AMITRIPTYLINE HYDROCHLORIDE [Concomitant]
     Dosage: UNK
     Dates: start: 20101004, end: 20101011
  12. TELMISARTAN [Concomitant]
     Dosage: UNK

REACTIONS (8)
  - MALAISE [None]
  - ASTHENIA [None]
  - URINE OUTPUT DECREASED [None]
  - BLOOD PRESSURE DIASTOLIC DECREASED [None]
  - DIZZINESS [None]
  - DYSSTASIA [None]
  - OEDEMA PERIPHERAL [None]
  - DECREASED APPETITE [None]
